FAERS Safety Report 7437123-9 (Version None)
Quarter: 2011Q2

REPORT INFORMATION
  Report Type: 
  Country: None (occurrence: None)
  Receive Date: 20110426
  Receipt Date: 20110414
  Transmission Date: 20111010
  Serious: Yes (Other)
  Sender: FDA-Public Use
  Company Number: AR-JNJFOC-20110407057

PATIENT
  Age: 68 Year
  Sex: Female

DRUGS (6)
  1. ATENOLOL [Concomitant]
     Route: 065
  2. AKATINOL MEMANTINA [Concomitant]
     Route: 065
  3. GALANTAMINE HYDROBROMIDE [Suspect]
     Indication: PRODUCT USED FOR UNKNOWN INDICATION
     Route: 065
  4. ASPIRIN [Concomitant]
     Route: 065
  5. SERTRALINA MERCK [Concomitant]
     Route: 065
  6. BROMAZEPAM [Concomitant]
     Route: 065

REACTIONS (3)
  - CONTUSION [None]
  - HALLUCINATION, VISUAL [None]
  - CONDITION AGGRAVATED [None]
